FAERS Safety Report 18643840 (Version 2)
Quarter: 2021Q1

REPORT INFORMATION
  Report Type: Spontaneous
  Country: BR (occurrence: BR)
  Receive Date: 20201221
  Receipt Date: 20210318
  Transmission Date: 20210419
  Serious: Yes (Other)
  Sender: FDA-Public Use
  Company Number: NVSC2020BR307983

PATIENT
  Age: 50 Year
  Sex: Female
  Weight: 66 kg

DRUGS (5)
  1. COSENTYX [Suspect]
     Active Substance: SECUKINUMAB
     Indication: ANKYLOSING SPONDYLITIS
     Dosage: UNK
     Route: 065
  2. COSENTYX [Suspect]
     Active Substance: SECUKINUMAB
     Dosage: 5 DF, INDUCTION DOSE 150 OT, EVERY 7DAYS
     Route: 058
     Dates: start: 20190115
  3. COSENTYX [Suspect]
     Active Substance: SECUKINUMAB
     Dosage: 15 MG, QMO
     Route: 058
  4. ADALIMUMAB [Suspect]
     Active Substance: ADALIMUMAB
     Indication: PRODUCT USED FOR UNKNOWN INDICATION
     Dosage: UNK
     Route: 065
  5. TECNOMET [Concomitant]
     Active Substance: METHOTREXATE
     Indication: ANKYLOSING SPONDYLITIS
     Dosage: 10 MG, QW
     Route: 048
     Dates: start: 20130121

REACTIONS (15)
  - Immunodeficiency [Unknown]
  - B-lymphocyte count decreased [Unknown]
  - Skin plaque [Recovered/Resolved]
  - Nasal injury [Unknown]
  - Candida infection [Not Recovered/Not Resolved]
  - Lip injury [Unknown]
  - Mouth injury [Unknown]
  - Macule [Recovered/Resolved]
  - Oral candidiasis [Not Recovered/Not Resolved]
  - CD8 lymphocytes decreased [Unknown]
  - Skin exfoliation [Unknown]
  - Vulvovaginal candidiasis [Unknown]
  - Skin lesion [Recovered/Resolved]
  - Erythema [Unknown]
  - Skin discolouration [Unknown]

NARRATIVE: CASE EVENT DATE: 20190226
